FAERS Safety Report 24653956 (Version 1)
Quarter: 2024Q4

REPORT INFORMATION
  Report Type: Spontaneous
  Country: GB (occurrence: GB)
  Receive Date: 20241122
  Receipt Date: 20241122
  Transmission Date: 20250115
  Serious: Yes (Other)
  Sender: PFIZER
  Company Number: None

PATIENT
  Sex: Male

DRUGS (1)
  1. DOCETAXEL [Suspect]
     Active Substance: DOCETAXEL
     Dosage: UNK

REACTIONS (3)
  - Flushing [Recovered/Resolved]
  - Hot flush [Recovered/Resolved]
  - Malaise [Recovered/Resolved]
